FAERS Safety Report 5937945-7 (Version None)
Quarter: 2008Q4

REPORT INFORMATION
  Report Type: 
  Country: None (occurrence: None)
  Receive Date: 20081031
  Receipt Date: 20081020
  Transmission Date: 20090506
  Serious: Yes (Hospitalization, Other)
  Sender: FDA-Public Use
  Company Number: US-PFIZER INC-2008028437

PATIENT
  Sex: Female

DRUGS (14)
  1. LYRICA [Suspect]
     Indication: PAIN
  2. LYRICA [Suspect]
     Indication: FIBROMYALGIA
  3. LYRICA [Suspect]
     Indication: NEUROPATHY PERIPHERAL
  4. ATENOLOL [Concomitant]
  5. CYMBALTA [Concomitant]
  6. SYNTHROID [Concomitant]
  7. TENIDAP SODIUM [Concomitant]
  8. PRILOSEC [Concomitant]
  9. HYDRALAZINE HCL [Concomitant]
  10. PLAVIX [Concomitant]
  11. POTASSIUM CHLORIDE [Concomitant]
  12. TOPAMAX [Concomitant]
  13. ZONEGRAN [Concomitant]
  14. ALPRAZOLAM [Concomitant]

REACTIONS (5)
  - FLUID RETENTION [None]
  - RENAL INJURY [None]
  - SKIN DISCOLOURATION [None]
  - SWELLING [None]
  - SWELLING FACE [None]
